FAERS Safety Report 13615495 (Version 3)
Quarter: 2017Q2

REPORT INFORMATION
  Report Type: Report from Study
  Country: US (occurrence: US)
  Receive Date: 20170606
  Receipt Date: 20170627
  Transmission Date: 20170830
  Serious: Yes (Hospitalization, Other)
  Sender: FDA-Public Use
  Company Number: US-AMGEN-USASL2017079460

PATIENT
  Age: 76 Year
  Sex: Female
  Weight: 53.42 kg

DRUGS (4)
  1. REPATHA [Suspect]
     Active Substance: EVOLOCUMAB
     Indication: HYPERCHOLESTEROLAEMIA
  2. REPATHA [Suspect]
     Active Substance: EVOLOCUMAB
     Indication: BLOOD CHOLESTEROL INCREASED
     Dosage: UNK
     Route: 065
  3. REPATHA [Suspect]
     Active Substance: EVOLOCUMAB
     Indication: LOW DENSITY LIPOPROTEIN INCREASED
     Dosage: UNK
     Route: 065
  4. REPATHA [Suspect]
     Active Substance: EVOLOCUMAB
     Indication: BLOOD CHOLESTEROL INCREASED
     Dosage: 140 MG/ML, Q2WK
     Route: 065
     Dates: start: 201512

REACTIONS (7)
  - Drug dispensing error [Unknown]
  - Fatigue [Unknown]
  - Cardiac failure [Unknown]
  - Chest discomfort [Unknown]
  - Migraine [Unknown]
  - Nephrolithiasis [Unknown]
  - Malaise [Unknown]

NARRATIVE: CASE EVENT DATE: 201609
